FAERS Safety Report 17249195 (Version 1)
Quarter: 2020Q1

REPORT INFORMATION
  Report Type: Other
  Country: IT (occurrence: IT)
  Receive Date: 20200108
  Receipt Date: 20200108
  Transmission Date: 20200409
  Serious: Yes (Hospitalization)
  Sender: FDA-Public Use
  Company Number: IT-VALIDUS PHARMACEUTICALS LLC-IT-2020VAL000015

PATIENT

DRUGS (1)
  1. LASIX [Suspect]
     Active Substance: FUROSEMIDE
     Indication: RENAL FAILURE
     Dosage: 500 MG, QD
     Route: 048
     Dates: start: 20181001, end: 20181020

REACTIONS (1)
  - Hypovolaemia [Recovering/Resolving]

NARRATIVE: CASE EVENT DATE: 20181010
